FAERS Safety Report 5843160-8 (Version None)
Quarter: 2008Q3

REPORT INFORMATION
  Report Type: 
  Country: None (occurrence: None)
  Receive Date: 20080813
  Receipt Date: 20080729
  Transmission Date: 20090109
  Serious: Yes (Other)
  Sender: FDA-Public Use
  Company Number: PHHY2008DE16015

PATIENT
  Sex: Female

DRUGS (12)
  1. ZOMETA [Suspect]
     Indication: PLASMACYTOMA
     Dosage: UNK
     Route: 042
     Dates: start: 20040901, end: 20070101
  2. CHEMOTHERAPEUTICS,OTHER [Suspect]
     Indication: PLASMACYTOMA
     Dosage: UNK
     Dates: start: 20040801, end: 20041001
  3. VINCRISTINE + ADRIAMYCIN + DEXAMETHASONE [Suspect]
     Indication: PLASMACYTOMA
     Dosage: 3 CYCLES
     Dates: start: 20040801, end: 20041001
  4. VINCRISTINE [Suspect]
     Indication: PLASMACYTOMA
     Dosage: 3 CYCLES
     Dates: start: 20040801, end: 20041001
  5. VINCRISTINE [Suspect]
     Dosage: SINGLE CYCLE
     Dates: start: 20041101
  6. DEXAMETHASONE TAB [Suspect]
     Indication: PLASMACYTOMA
     Dosage: 3 CYCLES
     Dates: start: 20040801, end: 20041001
  7. DEXAMETHASONE TAB [Suspect]
     Dosage: ONE CYCLE
     Dates: start: 20041101
  8. IDARUBICIN HCL [Suspect]
     Indication: PLASMACYTOMA
     Dosage: SINGLE CYCLE
     Dates: start: 20041101
  9. MELPHALAN [Concomitant]
     Indication: PLASMACYTOMA
     Dosage: UNK
     Dates: start: 20050101
  10. MELPHALAN [Concomitant]
     Dosage: UNK
     Dates: start: 20051101
  11. MELPHALAN [Concomitant]
     Dosage: 140 MG/M2 OF BODY SURFACE
     Dates: start: 20060201
  12. BORTEZOMIB [Concomitant]
     Dosage: 4 CYCLES
     Dates: start: 20060701, end: 20061201

REACTIONS (8)
  - ALOPECIA [None]
  - CUSHING'S SYNDROME [None]
  - DIARRHOEA [None]
  - NEUROPATHY PERIPHERAL [None]
  - OSTEONECROSIS [None]
  - PLASTIC SURGERY [None]
  - STEM CELL TRANSPLANT [None]
  - TOOTH EXTRACTION [None]
